FAERS Safety Report 5190502-5 (Version None)
Quarter: 2006Q4

REPORT INFORMATION
  Report Type: 
  Country: None (occurrence: None)
  Receive Date: 20061222
  Receipt Date: 20061211
  Transmission Date: 20070319
  Serious: Yes (Other)
  Sender: FDA-Public Use
  Company Number: JP-JPN-A200605299

PATIENT
  Age: 11 Year
  Sex: Male

DRUGS (3)
  1. FLUTIDE DISKUS [Suspect]
     Indication: INFANTILE ASTHMA
     Dosage: 100MCG TWICE PER DAY
     Route: 055
     Dates: start: 20060405
  2. SEREVENT [Concomitant]
     Dosage: 100MCG PER DAY
     Route: 055
  3. HOKUNALIN [Concomitant]
     Route: 062

REACTIONS (2)
  - FAILURE TO THRIVE [None]
  - GROWTH RETARDATION [None]
